FAERS Safety Report 19503098 (Version 1)
Quarter: 2021Q3

REPORT INFORMATION
  Report Type: Spontaneous
  Country: DE (occurrence: DE)
  Receive Date: 20210708
  Receipt Date: 20210708
  Transmission Date: 20211014
  Serious: Yes (Hospitalization)
  Sender: FDA-Public Use
  Company Number: DE-BAUSCH-BL-2021-022194

PATIENT
  Age: 61 Year
  Sex: Male
  Weight: 113.9 kg

DRUGS (27)
  1. METFORMIN [Suspect]
     Active Substance: METFORMIN HYDROCHLORIDE
     Route: 065
     Dates: start: 20181219, end: 20190109
  2. TRIMIPRAMIN [Concomitant]
     Active Substance: TRIMIPRAMINE
     Indication: PRODUCT USED FOR UNKNOWN INDICATION
     Dosage: UNK
     Route: 065
     Dates: start: 2017
  3. ATORVASTATIN [Concomitant]
     Active Substance: ATORVASTATIN
     Dosage: (20 MG)
     Route: 065
     Dates: start: 2017
  4. MAGNESIUM [Concomitant]
     Active Substance: MAGNESIUM
     Route: 065
  5. CANDESARTAN ACTAVIS [Concomitant]
     Active Substance: CANDESARTAN
     Indication: PRODUCT USED FOR UNKNOWN INDICATION
     Dosage: 0.5 DF, QD (16 MG)
     Route: 065
     Dates: start: 201709
  6. BISOHEXAL [Concomitant]
     Active Substance: BISOPROLOL FUMARATE
     Indication: PRODUCT USED FOR UNKNOWN INDICATION
     Route: 065
  7. BISOHEXAL [Concomitant]
     Active Substance: BISOPROLOL FUMARATE
     Route: 065
  8. VALSARTAN COMP [Suspect]
     Active Substance: HYDROCHLOROTHIAZIDE\VALSARTAN
     Indication: HYPERTENSION
     Dosage: (IN THE MORNING)
     Route: 065
  9. VENLAFAXINE [Concomitant]
     Active Substance: VENLAFAXINE HYDROCHLORIDE
     Dosage: (IN THE MORNING) (STARTED BETWEEN 19/DEC/2018 AND 09/JAN/2019)
     Route: 065
  10. ATORVASTATIN [Concomitant]
     Active Substance: ATORVASTATIN
     Indication: PRODUCT USED FOR UNKNOWN INDICATION
     Dosage: 1 UNK
     Route: 065
  11. METFORMIN [Suspect]
     Active Substance: METFORMIN HYDROCHLORIDE
     Dosage: (HALF OF A TABLET IN THE MORNING, HALF OF A TABLET IN THE EVENING (1/2?0?1/2)
     Route: 048
     Dates: start: 2017
  12. CANDESARTAN ACTAVIS [Concomitant]
     Active Substance: CANDESARTAN
     Route: 065
     Dates: start: 201709
  13. HCT [Concomitant]
     Active Substance: HYDROCHLOROTHIAZIDE
     Indication: PRODUCT USED FOR UNKNOWN INDICATION
     Route: 065
     Dates: start: 20171009, end: 201710
  14. VOLTAREN [Concomitant]
     Active Substance: DICLOFENAC SODIUM
     Indication: PRODUCT USED FOR UNKNOWN INDICATION
     Dosage: UNK
     Route: 065
     Dates: start: 20171009
  15. IBUHEXAL [Concomitant]
     Active Substance: IBUPROFEN
     Indication: PRODUCT USED FOR UNKNOWN INDICATION
     Dosage: PRN
     Route: 065
  16. VALSARTAN 1A PHARMA [Suspect]
     Active Substance: VALSARTAN
     Indication: HYPERTENSION
     Route: 065
     Dates: start: 20171019, end: 2018
  17. BISOBETA [Concomitant]
     Active Substance: BISOPROLOL FUMARATE
     Indication: PRODUCT USED FOR UNKNOWN INDICATION
     Route: 065
  18. ATORVASTATIN [Concomitant]
     Active Substance: ATORVASTATIN
     Dosage: (IN THE EVENING
     Route: 065
     Dates: start: 2017
  19. METFORMIN [Suspect]
     Active Substance: METFORMIN HYDROCHLORIDE
     Indication: PRODUCT USED FOR UNKNOWN INDICATION
     Dosage: (IN THE MORNING AND IN THE EVENING)
     Route: 065
     Dates: start: 2017
  20. VENLAFAXINE [Concomitant]
     Active Substance: VENLAFAXINE HYDROCHLORIDE
     Indication: PRODUCT USED FOR UNKNOWN INDICATION
     Dosage: (IN THE MORNING)
     Route: 065
  21. IBUPROFEN. [Concomitant]
     Active Substance: IBUPROFEN
     Indication: PRODUCT USED FOR UNKNOWN INDICATION
     Dosage: PRN
     Route: 065
  22. BISOPROLOL [Concomitant]
     Active Substance: BISOPROLOL
     Indication: PRODUCT USED FOR UNKNOWN INDICATION
     Dosage: (IN THE MORNING)
     Route: 065
     Dates: start: 2017
  23. VALSARTAN. [Suspect]
     Active Substance: VALSARTAN
     Indication: PRODUCT USED FOR UNKNOWN INDICATION
     Dosage: 1 DF (320 MG), QD
     Route: 065
     Dates: start: 20170926, end: 201710
  24. VALSARTAN. [Suspect]
     Active Substance: VALSARTAN
     Dosage: 1 DF(160 MG) , QD
     Route: 065
     Dates: start: 20170920
  25. VALSARTAN. [Suspect]
     Active Substance: VALSARTAN
     Dosage: 0.5 DF (160 MG), QD
     Route: 065
     Dates: start: 20170920, end: 20170926
  26. AMLODIPINE [Concomitant]
     Active Substance: AMLODIPINE BESYLATE
     Indication: PRODUCT USED FOR UNKNOWN INDICATION
     Dosage: (IN THE MORNING)
     Route: 065
  27. MAGNESIUM [Concomitant]
     Active Substance: MAGNESIUM
     Indication: PRODUCT USED FOR UNKNOWN INDICATION
     Dosage: (IN THE MORNING)
     Route: 065

REACTIONS (30)
  - Merycism [Unknown]
  - Depression [Recovering/Resolving]
  - Apathy [Unknown]
  - Movement disorder [Unknown]
  - Micturition urgency [Unknown]
  - Spinal osteoarthritis [Unknown]
  - Osteoarthritis [Unknown]
  - Arthralgia [Unknown]
  - Snoring [Unknown]
  - Fear of disease [Unknown]
  - Hyperhidrosis [Unknown]
  - Blood pressure abnormal [Unknown]
  - Disturbance in attention [Unknown]
  - Abdominal tenderness [Unknown]
  - Diarrhoea [Unknown]
  - Social avoidant behaviour [Unknown]
  - Depressed mood [Unknown]
  - Fatigue [Unknown]
  - Nervousness [Unknown]
  - Drug intolerance [Unknown]
  - Emotional distress [Unknown]
  - Mental disorder [Unknown]
  - Obesity [Unknown]
  - Product contamination [Unknown]
  - Somatic symptom disorder [Unknown]
  - Sleep disorder [Unknown]
  - Feeling abnormal [Unknown]
  - Pain [Unknown]
  - Weight decreased [Unknown]
  - Infection [Unknown]

NARRATIVE: CASE EVENT DATE: 2017
